FAERS Safety Report 5044592-0 (Version None)
Quarter: 2006Q2

REPORT INFORMATION
  Report Type: 
  Country: None (occurrence: None)
  Receive Date: 20060601
  Receipt Date: 20060307
  Transmission Date: 20061013
  Serious: No
  Sender: FDA-Public Use
  Company Number: 2006-BP-01795BP

PATIENT
  Sex: Female

DRUGS (7)
  1. SPIRIVA [Suspect]
     Indication: BRONCHITIS
     Dosage: (18 MCG),IH
  2. SPIRIVA [Suspect]
     Indication: CHRONIC OBSTRUCTIVE PULMONARY DISEASE
     Dosage: (18 MCG),IH
  3. ATENOLOL [Concomitant]
  4. KLONOPIN [Concomitant]
  5. LESCOL [Concomitant]
  6. VICODIN [Concomitant]
  7. OXYGEN (OXYGEN) [Concomitant]

REACTIONS (6)
  - ALOPECIA [None]
  - CARDIAC FAILURE CONGESTIVE [None]
  - INSOMNIA [None]
  - NAUSEA [None]
  - PNEUMONIA [None]
  - TREMOR [None]
